FAERS Safety Report 10677415 (Version 1)
Quarter: 2014Q4

REPORT INFORMATION
  Report Type: Report from Study
  Country: US (occurrence: US)
  Receive Date: 20141227
  Receipt Date: 20141227
  Transmission Date: 20150529
  Serious: Yes (Other)
  Sender: FDA-Public Use
  Company Number: US-ABBVIE-14K-163-1324409-00

PATIENT
  Age: 38 Year
  Sex: Female

DRUGS (2)
  1. HUMIRA [Suspect]
     Active Substance: ADALIMUMAB
     Indication: RHEUMATOID ARTHRITIS
     Route: 065
     Dates: start: 20130601
  2. HUMIRA [Suspect]
     Active Substance: ADALIMUMAB
     Route: 065
     Dates: start: 2013

REACTIONS (7)
  - Injection site pain [Recovered/Resolved]
  - Road traffic accident [Not Recovered/Not Resolved]
  - Fatigue [Recovered/Resolved]
  - Pain [Unknown]
  - Post-traumatic neck syndrome [Unknown]
  - Arthropathy [Unknown]
  - Unevaluable event [Unknown]

NARRATIVE: CASE EVENT DATE: 20130601
